FAERS Safety Report 5848552-9 (Version None)
Quarter: 2008Q3

REPORT INFORMATION
  Report Type: 
  Country: None (occurrence: None)
  Receive Date: 20080814
  Receipt Date: 20080731
  Transmission Date: 20090109
  Serious: Yes (Hospitalization)
  Sender: FDA-Public Use
  Company Number: 20080221 /

PATIENT
  Age: 25 Year
  Sex: Female

DRUGS (2)
  1. VENOFER [Suspect]
     Indication: IRON DEFICIENCY ANAEMIA
     Dosage: 300 MG ONCE
     Dates: start: 20080709
  2. TICK-BORNE ENCEPHALITIS VACCINE [Suspect]
     Indication: PROPHYLAXIS
     Dosage: 1 DOSAGE INTRAVENOUS DRIP
     Route: 041
     Dates: start: 20080709

REACTIONS (8)
  - CONCUSSION [None]
  - CONFUSIONAL STATE [None]
  - DIZZINESS [None]
  - FALL [None]
  - HYPOTENSION [None]
  - LOSS OF CONSCIOUSNESS [None]
  - PAIN [None]
  - SYNCOPE [None]
